FAERS Safety Report 7766701-2 (Version None)
Quarter: 2011Q3

REPORT INFORMATION
  Report Type: 
  Country: None (occurrence: None)
  Receive Date: 20110922
  Receipt Date: 20110920
  Transmission Date: 20111222
  Serious: Yes (Death, Other)
  Sender: FDA-Public Use
  Company Number: US-BAYER-2011-030622

PATIENT
  Age: 60 Year
  Sex: Female

DRUGS (4)
  1. FLEXERIL [Concomitant]
     Indication: PAIN
     Dosage: 10 MG, UNK
     Dates: start: 20110322
  2. LACTULOSE [Concomitant]
     Indication: HEPATIC ENCEPHALOPATHY
  3. NEXAVAR [Suspect]
     Dosage: 200 MG, QD
     Route: 048
     Dates: start: 20110506, end: 20110724
  4. NEXAVAR [Suspect]
     Indication: HEPATIC NEOPLASM MALIGNANT
     Dosage: 200 MG, BID
     Route: 048
     Dates: start: 20110330, end: 20110502

REACTIONS (7)
  - SPEECH DISORDER [None]
  - RESPIRATORY DISTRESS [None]
  - DECREASED APPETITE [None]
  - MUSCULAR WEAKNESS [None]
  - SIALOADENITIS [None]
  - DIARRHOEA [None]
  - CHRONIC HEPATIC FAILURE [None]
